FAERS Safety Report 12160616 (Version 2)
Quarter: 2016Q1

REPORT INFORMATION
  Report Type: Spontaneous
  Country: CA (occurrence: CA)
  Receive Date: 20160308
  Receipt Date: 20160314
  Transmission Date: 20160526
  Serious: Yes (Hospitalization, Other)
  Sender: FDA-Public Use
  Company Number: CA-PFIZER INC-2016143319

PATIENT
  Age: 5 Year
  Sex: Male

DRUGS (1)
  1. CHILDRENS ADVIL [Suspect]
     Active Substance: IBUPROFEN
     Dosage: 3 DOSES FOR 3 CONSECUTIVE DAYS

REACTIONS (7)
  - Abdominal pain [Not Recovered/Not Resolved]
  - Gastric haemorrhage [Unknown]
  - Drug administration error [Unknown]
  - Poor quality drug administered [Unknown]
  - Product quality issue [Unknown]
  - Accidental overdose [Unknown]
  - Gastrointestinal haemorrhage [Unknown]
